FAERS Safety Report 18791763 (Version 4)
Quarter: 2021Q1

REPORT INFORMATION
  Report Type: Report from Study
  Country: None (occurrence: US)
  Receive Date: 20210127
  Receipt Date: 20210312
  Transmission Date: 20210419
  Serious: Yes (Hospitalization, Other)
  Sender: FDA-Public Use
  Company Number: US-ABBVIE-21K-163-3744363-00

PATIENT
  Age: 36 Year
  Sex: Male
  Weight: 83.99 kg

DRUGS (4)
  1. LYRICA [Concomitant]
     Active Substance: PREGABALIN
     Indication: NEURALGIA
  2. RINVOQ [Suspect]
     Active Substance: UPADACITINIB
     Indication: RHEUMATOID ARTHRITIS
     Route: 048
     Dates: start: 2020, end: 202012
  3. RINVOQ [Suspect]
     Active Substance: UPADACITINIB
     Route: 048
     Dates: start: 202012, end: 20210128
  4. SOLU?MEDROL [Concomitant]
     Active Substance: METHYLPREDNISOLONE SODIUM SUCCINATE
     Indication: NEPHROLITHIASIS

REACTIONS (8)
  - COVID-19 [Recovered/Resolved]
  - Myocardial infarction [Unknown]
  - Rash [Unknown]
  - Alopecia [Unknown]
  - Rash pruritic [Unknown]
  - Thrombosis [Recovering/Resolving]
  - Coronary artery thrombosis [Recovered/Resolved]
  - Acne [Unknown]

NARRATIVE: CASE EVENT DATE: 202012
